FAERS Safety Report 15208865 (Version 1)
Quarter: 2018Q4

REPORT INFORMATION
  Report Type: Spontaneous
  Country: US (occurrence: US)
  Receive Date: 20180727
  Receipt Date: 20180727
  Transmission Date: 20190204
  Serious: Yes (Other)
  Sender: FDA-Public Use
  Company Number: US-HIKMA PHARMACEUTICALS USA INC.-US-H14001-18-06028

PATIENT
  Age: 25 Year
  Sex: Female

DRUGS (1)
  1. VALPROATE [Suspect]
     Active Substance: VALPROIC ACID
     Indication: EPILEPSY
     Route: 065

REACTIONS (4)
  - Toxicity to various agents [Unknown]
  - 3-hydroxyacetyl-coenzyme A dehydrogenase deficiency [Unknown]
  - Lipid metabolism disorder [Unknown]
  - Myopathy [Unknown]
